FAERS Safety Report 4621552-2 (Version None)
Quarter: 2005Q1

REPORT INFORMATION
  Report Type: 
  Country: None (occurrence: None)
  Receive Date: 20050328
  Receipt Date: 20030901
  Transmission Date: 20050727
  Serious: No
  Sender: FDA-Public Use
  Company Number: 5915

PATIENT
  Age: 83 Year
  Sex: Female

DRUGS (3)
  1. AMIODARONE HCL [Suspect]
     Indication: ATRIAL FIBRILLATION
     Dosage: 100 MG; PO
     Route: 048
     Dates: start: 20020903, end: 20030708
  2. COMPOUND ALGINATE [Concomitant]
  3. ACETYL SALICYLIC ACID USP BAT [Concomitant]

REACTIONS (7)
  - ERYTHEMA [None]
  - HYPERAESTHESIA [None]
  - HYPOTRICHOSIS [None]
  - PAIN OF SKIN [None]
  - PHOTOSENSITIVITY REACTION [None]
  - SUNBURN [None]
  - WEIGHT INCREASED [None]
